FAERS Safety Report 8283888 (Version 13)
Quarter: 2012Q4

REPORT INFORMATION
  Report Type: 
  Country: CA (occurrence: CA)
  Receive Date: 20111212
  Receipt Date: 20121227
  Transmission Date: 20130627
  Serious: Yes (Hospitalization, Other)
  Sender: FDA-Public Use
  Company Number: PHHY2011CA64556

PATIENT
  Age: 74 Year
  Sex: Female

DRUGS (2)
  1. SANDOSTATIN [Suspect]
     Indication: NEUROENDOCRINE TUMOUR
     Dosage: UNK UKN, UNK
     Route: 058
     Dates: start: 20110711
  2. SANDOSTATIN LAR [Suspect]
     Indication: NEUROENDOCRINE TUMOUR
     Dosage: 20 mg, once a month
     Route: 030
     Dates: start: 20110726

REACTIONS (22)
  - Fall [Unknown]
  - Pneumonia [Unknown]
  - Abdominal discomfort [Recovering/Resolving]
  - Diarrhoea [Unknown]
  - Fatigue [Unknown]
  - Mental disorder [Unknown]
  - Vasculitis [Unknown]
  - Suicidal ideation [Unknown]
  - Malaise [Unknown]
  - Blood pressure systolic increased [Unknown]
  - Depressed mood [Unknown]
  - Psychiatric symptom [Unknown]
  - Tremor [Recovered/Resolved]
  - Feeling jittery [Unknown]
  - Oedema peripheral [Unknown]
  - Pain in extremity [Unknown]
  - Wound [Unknown]
  - Muscular weakness [Unknown]
  - Depression [Recovered/Resolved]
  - Nervousness [Recovered/Resolved]
  - Pollakiuria [Recovered/Resolved]
  - Nausea [Recovered/Resolved]
